FAERS Safety Report 7463078-7 (Version None)
Quarter: 2011Q2

REPORT INFORMATION
  Report Type: 
  Country: None (occurrence: None)
  Receive Date: 20110506
  Receipt Date: 20110502
  Transmission Date: 20111010
  Serious: Yes (Hospitalization)
  Sender: FDA-Public Use
  Company Number: US-ROCHE-633661

PATIENT
  Sex: Male
  Weight: 124.5 kg

DRUGS (47)
  1. ACTEMRA [Suspect]
     Route: 042
     Dates: start: 20090330
  2. ACTEMRA [Suspect]
     Route: 042
     Dates: start: 20090427
  3. ROPINIROLE [Concomitant]
  4. MULTI-VITAMIN [Concomitant]
     Dates: start: 20050101
  5. METHOTREXATE [Concomitant]
     Dosage: ROUTE REPORTED: PO + IM.
     Dates: start: 20090202, end: 20090518
  6. ZOLOFT [Concomitant]
     Dates: start: 20060818
  7. LUNESTA [Concomitant]
     Dates: start: 20090215, end: 20090615
  8. FOLIC ACID [Concomitant]
     Dates: start: 20050608
  9. ASPIRIN [Concomitant]
     Dates: start: 20070106
  10. LASIX [Concomitant]
     Dates: start: 20061230
  11. SIMVASTATIN [Concomitant]
     Dates: start: 20080430
  12. ALPRAZOLAM [Concomitant]
  13. AMITIZA [Concomitant]
     Dosage: EVERY 12 HRS PRN
  14. ENALAPRIL [Concomitant]
     Dates: start: 20040101
  15. POTASSIUM [Concomitant]
     Dates: start: 20061230
  16. METHYLPREDNISOLONE [Concomitant]
     Dosage: DOSE: VARIOUS, FREQUENCY: VARIOUS TIMES, ROUTE: ^IA^.
     Route: 050
  17. FUROSEMIDE [Concomitant]
  18. CYANOCOBALAMIN [Concomitant]
  19. ACTEMRA [Suspect]
     Dosage: PREVIOUSLY ENROLLED IN WA18062.
     Route: 042
  20. FOLIC ACID [Concomitant]
  21. FLOMAX [Concomitant]
     Dates: start: 20070102
  22. RELAFEN [Concomitant]
     Dates: start: 20080211
  23. CYMBALTA [Concomitant]
     Dates: start: 20080616
  24. SIMVASTATIN [Concomitant]
     Dates: start: 20080430
  25. FLOVENT [Concomitant]
     Dosage: FORM: PUFF
  26. ACTEMRA [Suspect]
     Indication: RHEUMATOID ARTHRITIS
     Dosage: THERAPY TEMPORARILY INTERRUPTED.
     Route: 042
     Dates: start: 20060307
  27. ACTEMRA [Suspect]
     Route: 042
     Dates: start: 20090202
  28. ACTEMRA [Suspect]
     Dosage: DOSAGE FORM : INFUSION PERMANENTLY DISCONTINUED
     Route: 042
     Dates: end: 20090516
  29. DILTIAZEM [Concomitant]
     Dates: start: 19940101
  30. DILTIAZEM [Concomitant]
     Dates: start: 19960101
  31. LASIX [Concomitant]
     Dates: start: 20080416
  32. ROPINIROLE [Concomitant]
     Dates: start: 20081001
  33. CALCIUM [Concomitant]
     Dates: start: 20081205
  34. RITUXAN [Concomitant]
     Indication: RHEUMATOID ARTHRITIS
  35. SINGULAIR [Concomitant]
  36. FLOMAX [Concomitant]
     Dates: start: 20090216
  37. TAGAMET [Concomitant]
     Dates: start: 20070201
  38. SULFASALAZINE [Concomitant]
     Dates: start: 20090202
  39. NITROGLYCERIN [Concomitant]
     Route: 060
  40. FLOMAX [Concomitant]
  41. ACTEMRA [Suspect]
     Route: 042
     Dates: start: 20090302
  42. OXYCODONE [Concomitant]
     Dates: start: 20051101
  43. OXYCODONE [Concomitant]
     Dates: start: 20051201
  44. METHOTREXATE [Concomitant]
     Dosage: FREQUENCY REPORTED: QS
     Dates: start: 20070110
  45. VITAMIN D [Concomitant]
     Dates: start: 20081205
  46. COMPAZINE [Concomitant]
     Dosage: FORM: PUFF
  47. COMBIVENT [Concomitant]

REACTIONS (1)
  - NON-HODGKIN'S LYMPHOMA [None]
